FAERS Safety Report 19010197 (Version 1)
Quarter: 2021Q1

REPORT INFORMATION
  Report Type: Other
  Country: FR (occurrence: FR)
  Receive Date: 20210316
  Receipt Date: 20210316
  Transmission Date: 20210420
  Serious: Yes (Death, Other)
  Sender: FDA-Public Use
  Company Number: FR-CELLTRION INC.-2021FR003302

PATIENT

DRUGS (1)
  1. TRUXIMA [Suspect]
     Active Substance: RITUXIMAB-ABBS
     Indication: LYMPHOCYTIC LYMPHOMA
     Dosage: 681 MG, CYCLIC
     Route: 041
     Dates: start: 20200710, end: 20200710

REACTIONS (8)
  - Malaise [Recovered/Resolved]
  - Overdose [Unknown]
  - Hyperhidrosis [Recovered/Resolved]
  - Vomiting [Recovered/Resolved]
  - Immediate post-injection reaction [Recovered/Resolved]
  - Lymphocytic lymphoma [Fatal]
  - Pyrexia [Recovered/Resolved]
  - Hypotension [Recovered/Resolved]

NARRATIVE: CASE EVENT DATE: 20200710
